FAERS Safety Report 12118022 (Version 1)
Quarter: 2016Q1

REPORT INFORMATION
  Report Type: Spontaneous
  Country: US (occurrence: US)
  Receive Date: 20160226
  Receipt Date: 20160226
  Transmission Date: 20160526
  Serious: Yes (Other)
  Sender: FDA-Public Use
  Company Number: US-BRISTOL-MYERS SQUIBB COMPANY-BMS-2016-013106

PATIENT
  Sex: Male
  Weight: 90.7 kg

DRUGS (1)
  1. OPDIVO [Suspect]
     Active Substance: NIVOLUMAB
     Indication: GLIOBLASTOMA
     Dosage: UNK
     Route: 042
     Dates: start: 201511

REACTIONS (5)
  - Off label use [Unknown]
  - Sunburn [Unknown]
  - Pneumonitis [Unknown]
  - Swelling face [Unknown]
  - Erythema [Unknown]
